FAERS Safety Report 19628098 (Version 1)
Quarter: 2021Q3

REPORT INFORMATION
  Report Type: Other
  Country: CA (occurrence: CA)
  Receive Date: 20210728
  Receipt Date: 20210728
  Transmission Date: 20211014
  Serious: Yes (Other)
  Sender: FDA-Public Use
  Company Number: CA-PFIZER INC-2021900815

PATIENT
  Age: 20 Year
  Sex: Female

DRUGS (11)
  1. METHOTREXATE SODIUM. [Suspect]
     Active Substance: METHOTREXATE SODIUM
     Indication: PERIPHERAL T-CELL LYMPHOMA UNSPECIFIED
     Dosage: UNK
  2. ETOPOSIDE. [Suspect]
     Active Substance: ETOPOSIDE
     Dosage: UNK, CYCLIC
  3. ETOPOSIDE. [Suspect]
     Active Substance: ETOPOSIDE
     Indication: HAEMOPHAGOCYTIC LYMPHOHISTIOCYTOSIS
     Dosage: UNK, CYCLIC
  4. ETOPOSIDE. [Suspect]
     Active Substance: ETOPOSIDE
     Dosage: UNK, CYCLIC
  5. ETOPOSIDE. [Suspect]
     Active Substance: ETOPOSIDE
     Dosage: 75 MG/M2, CYCLIC
  6. DEXAMETHASONE. [Concomitant]
     Active Substance: DEXAMETHASONE
     Dosage: UNK
     Route: 065
  7. METHYLPREDNISOLONE. [Concomitant]
     Active Substance: METHYLPREDNISOLONE
     Dosage: UNK
  8. GRANULOCYTE COLONY STIMULATING FACTOR [Concomitant]
     Active Substance: GRANULOCYTE COLONY-STIMULATING FACTOR NOS
     Dosage: UNK
  9. PREDNISONE. [Concomitant]
     Active Substance: PREDNISONE
     Dosage: UNK
  10. ETOPOSIDE. [Suspect]
     Active Substance: ETOPOSIDE
     Dosage: UNK, CYCLIC
  11. JAKAVI [Suspect]
     Active Substance: RUXOLITINIB
     Indication: HAEMOPHAGOCYTIC LYMPHOHISTIOCYTOSIS
     Dosage: 5 MG, 2X/DAY

REACTIONS (8)
  - Cytomegalovirus infection reactivation [Recovered/Resolved]
  - Lung abscess [Recovered/Resolved]
  - Cystitis klebsiella [Recovered/Resolved]
  - Intensive care unit acquired weakness [Recovered/Resolved]
  - Cytopenia [Recovered/Resolved]
  - Neurological symptom [Recovered/Resolved]
  - Staphylococcal infection [Recovered/Resolved]
  - Neutropenia [Recovered/Resolved]
